FAERS Safety Report 6258106-0 (Version None)
Quarter: 2009Q3

REPORT INFORMATION
  Report Type: 
  Country: None (occurrence: None)
  Receive Date: 20090707
  Receipt Date: 20090702
  Transmission Date: 20100115
  Serious: Yes (Death)
  Sender: FDA-Public Use
  Company Number: JP-ELI_LILLY_AND_COMPANY-JP200903005781

PATIENT
  Sex: Female
  Weight: 43 kg

DRUGS (4)
  1. GEMZAR [Suspect]
     Indication: PANCREATIC CARCINOMA STAGE IV
     Dosage: 1100 MG, OTHER
     Route: 042
     Dates: start: 20081210, end: 20090218
  2. TS 1 [Concomitant]
     Indication: PANCREATIC CARCINOMA STAGE IV
     Dosage: 80 MG, OTHER
     Route: 048
     Dates: start: 20081203, end: 20090227
  3. JUZENTAIHOTO [Concomitant]
     Dosage: 2.5 G, 3/D
     Route: 048
  4. ELIETEN [Concomitant]
     Dosage: 1 D/F, 3/D
     Route: 048

REACTIONS (3)
  - AORTIC DISSECTION [None]
  - DERMATITIS [None]
  - INTERSTITIAL LUNG DISEASE [None]
